FAERS Safety Report 23924278 (Version 1)
Quarter: 2024Q2

REPORT INFORMATION
  Report Type: Spontaneous
  Country: SE (occurrence: SE)
  Receive Date: 20240531
  Receipt Date: 20240531
  Transmission Date: 20240716
  Serious: Yes (Other)
  Sender: FDA-Public Use
  Company Number: None

PATIENT
  Sex: Female
  Weight: 58 kg

DRUGS (1)
  1. MIRENA [Suspect]
     Active Substance: LEVONORGESTREL
     Dosage: 20?G/DAY
     Route: 015
     Dates: start: 20210401, end: 20231027

REACTIONS (9)
  - Cervical polyp [Unknown]
  - Sexual dysfunction [Recovering/Resolving]
  - Intermenstrual bleeding [Recovering/Resolving]
  - Increased appetite [None]
  - Dissociation [Recovering/Resolving]
  - Drug ineffective [None]
  - Headache [None]
  - Generalised oedema [Recovered/Resolved]
  - Alopecia [Recovering/Resolving]

NARRATIVE: CASE EVENT DATE: 20210401
